FAERS Safety Report 6695473-8 (Version None)
Quarter: 2010Q2

REPORT INFORMATION
  Report Type: 
  Country: None (occurrence: None)
  Receive Date: 20100422
  Receipt Date: 20100422
  Transmission Date: 20101027
  Serious: Yes (Hospitalization)
  Sender: FDA-Public Use
  Company Number: None

PATIENT
  Sex: Female
  Weight: 79 kg

DRUGS (2)
  1. CISPLATIN [Suspect]
     Dosage: 25 MG
     Dates: end: 20100325
  2. TAXOL [Suspect]
     Dates: end: 20091118

REACTIONS (5)
  - BACTERIAL TEST POSITIVE [None]
  - DEHYDRATION [None]
  - NAUSEA [None]
  - PYREXIA [None]
  - VOMITING [None]
